FAERS Safety Report 19062365 (Version 5)
Quarter: 2023Q4

REPORT INFORMATION
  Report Type: Spontaneous
  Country: US (occurrence: US)
  Receive Date: 20210326
  Receipt Date: 20231219
  Transmission Date: 20240110
  Serious: Yes (Other)
  Sender: FDA-Public Use
  Company Number: US-PFIZER INC-2021305864

PATIENT
  Age: 71 Year
  Sex: Female

DRUGS (1)
  1. XELJANZ [Suspect]
     Active Substance: TOFACITINIB CITRATE
     Dosage: 5MG 2 TABLETS DAILY

REACTIONS (4)
  - Pelvic fracture [Unknown]
  - Bone density abnormal [Unknown]
  - Osteoporosis [Unknown]
  - Treatment failure [Unknown]
